FAERS Safety Report 8962626 (Version 1)
Quarter: 2012Q4

REPORT INFORMATION
  Report Type: Spontaneous
  Country: US (occurrence: None)
  Receive Date: 20121211
  Receipt Date: 20121211
  Transmission Date: 20130627
  Serious: Yes (Death)
  Sender: FDA-Public Use
  Company Number: None

PATIENT
  Age: 56 Year
  Sex: Male

DRUGS (9)
  1. REVLIMID [Suspect]
     Indication: MULTIPLE MYELOMA
     Route: 048
  2. AMOXICILLIN/CLAVULANATE POTASSIUM [Concomitant]
  3. DEXAMETHASONE [Concomitant]
  4. PSEUDOEPHEDRINE [Concomitant]
  5. ALBUTEROL [Concomitant]
  6. ACYCLOVIR [Concomitant]
  7. HYDROCODONE/APAP [Concomitant]
  8. LYRICA [Concomitant]
  9. OMEPRAZOLE [Concomitant]

REACTIONS (2)
  - Gastrointestinal haemorrhage [None]
  - Haemorrhage intracranial [None]
